FAERS Safety Report 5824486-0 (Version None)
Quarter: 2008Q3

REPORT INFORMATION
  Report Type: 
  Country: None (occurrence: None)
  Receive Date: 20080728
  Receipt Date: 20080716
  Transmission Date: 20090109
  Serious: Yes (Hospitalization)
  Sender: FDA-Public Use
  Company Number: US-JNJFOC-20080204374

PATIENT
  Sex: Female
  Weight: 109.32 kg

DRUGS (5)
  1. REMICADE [Suspect]
     Route: 042
  2. REMICADE [Suspect]
     Route: 042
  3. REMICADE [Suspect]
     Indication: RHEUMATOID ARTHRITIS
     Route: 042
  4. CYMBALTA [Concomitant]
  5. ULTRACET [Concomitant]

REACTIONS (5)
  - CHEST DISCOMFORT [None]
  - FALL [None]
  - GAIT DISTURBANCE [None]
  - POST CONCUSSION SYNDROME [None]
  - SYNCOPE VASOVAGAL [None]
